FAERS Safety Report 9178567 (Version 1)
Quarter: 2013Q1

REPORT INFORMATION
  Report Type: Spontaneous
  Country: US (occurrence: US)
  Receive Date: 20130321
  Receipt Date: 20130321
  Transmission Date: 20140127
  Serious: Yes (Other)
  Sender: FDA-Public Use
  Company Number: US-TEVA-393128USA

PATIENT
  Age: 10 Year
  Sex: Female

DRUGS (4)
  1. HYDROCORTISONE [Suspect]
     Route: 065
  2. BEVACIZUMAB [Suspect]
     Indication: ASTROCYTOMA
     Dosage: 10MG/KG/DAY EVERY 2 WEEKS
     Route: 042
  3. DEXAMETHASONE [Suspect]
     Route: 065
  4. IRINOTECAN [Concomitant]
     Dosage: 125-250MG/M2/DAY EVERY 2 WEEKS
     Route: 042

REACTIONS (2)
  - Osteonecrosis [Not Recovered/Not Resolved]
  - Condition aggravated [Not Recovered/Not Resolved]
